FAERS Safety Report 9348516 (Version 3)
Quarter: 2013Q3

REPORT INFORMATION
  Report Type: Report from Study
  Country: JP (occurrence: JP)
  Receive Date: 20130614
  Receipt Date: 20130710
  Transmission Date: 20140515
  Serious: Yes (Hospitalization)
  Sender: FDA-Public Use
  Company Number: JP-INCYTE CORPORATION-2013IN001211

PATIENT
  Age: 47 Year
  Sex: 0
  Weight: 75 kg

DRUGS (6)
  1. CINC424B2301 [Suspect]
     Indication: POLYCYTHAEMIA VERA
     Dosage: 15 MG, BID
     Route: 048
     Dates: start: 20120426, end: 20130602
  2. CINC424B2301 [Suspect]
     Dosage: 15 MG, BID
     Route: 048
     Dates: start: 20130614
  3. BAYASPIRIN [Suspect]
     Indication: THROMBOSIS PROPHYLAXIS
     Dosage: 100 MG, QD
     Route: 048
     Dates: start: 20070104, end: 20130602
  4. BAYASPIRIN [Suspect]
     Dosage: 100 MG, QD
     Route: 048
     Dates: start: 20130628
  5. ZYLORIC [Concomitant]
     Dosage: UNK
     Dates: start: 20051222
  6. ALLEGRA [Concomitant]
     Dosage: UNK
     Dates: start: 20090118

REACTIONS (1)
  - Splenic rupture [Not Recovered/Not Resolved]
